FAERS Safety Report 4726236-8 (Version None)
Quarter: 2005Q3

REPORT INFORMATION
  Report Type: 
  Country: None (occurrence: None)
  Receive Date: 20050725
  Receipt Date: 20050606
  Transmission Date: 20060218
  Serious: Yes (Other)
  Sender: FDA-Public Use
  Company Number: 2005BL004344

PATIENT

DRUGS (1)
  1. TROPICAMIDE [Suspect]
     Dosage: 2 DROP ; 1 TIME; OPHTHALMIC

REACTIONS (2)
  - INTRACRANIAL ANEURYSM [None]
  - SUBARACHNOID HAEMORRHAGE [None]
